FAERS Safety Report 10676072 (Version 1)
Quarter: 2014Q4

REPORT INFORMATION
  Report Type: Spontaneous
  Country: NL (occurrence: NL)
  Receive Date: 20141225
  Receipt Date: 20141225
  Transmission Date: 20150529
  Serious: Yes (Life-Threatening, Hospitalization, Other)
  Sender: FDA-Public Use
  Company Number: PHHY2014NL166676

PATIENT
  Age: 46 Year
  Sex: Female

DRUGS (6)
  1. CLOMIPRAMINE [Suspect]
     Active Substance: CLOMIPRAMINE
     Indication: PANIC DISORDER
  2. BACLOFEN. [Suspect]
     Active Substance: BACLOFEN
     Indication: PANIC DISORDER
     Dosage: 700 MG, UNK (70 TABLETS OF 10 MG)
     Route: 048
  3. CLOMIPRAMINE [Suspect]
     Active Substance: CLOMIPRAMINE
     Indication: ALCOHOLISM
     Dosage: 75 MG, QD
     Route: 065
  4. OXAZEPAM. [Suspect]
     Active Substance: OXAZEPAM
     Indication: ALCOHOLISM
     Dosage: 10 MG, QD
     Route: 065
  5. OXAZEPAM. [Suspect]
     Active Substance: OXAZEPAM
     Indication: PANIC DISORDER
  6. BACLOFEN. [Suspect]
     Active Substance: BACLOFEN
     Indication: ALCOHOLISM
     Dosage: 10 MG, TID
     Route: 048

REACTIONS (15)
  - Restlessness [Unknown]
  - Disturbance in attention [Unknown]
  - Depressed level of consciousness [Recovered/Resolved]
  - Hypertension [Unknown]
  - Hypokalaemia [Unknown]
  - Hyponatraemia [Unknown]
  - Respiratory failure [Unknown]
  - Hyperhidrosis [Unknown]
  - Toxicity to various agents [Recovered/Resolved]
  - Hallucination, auditory [Unknown]
  - Mydriasis [Unknown]
  - Intentional overdose [Unknown]
  - Hypothermia [Unknown]
  - Nausea [Unknown]
  - Vomiting [Unknown]
